FAERS Safety Report 8554272-2 (Version None)
Quarter: 2012Q3

REPORT INFORMATION
  Report Type: 
  Country: None (occurrence: None)
  Receive Date: 20120731
  Receipt Date: 20120731
  Transmission Date: 20120928
  Serious: Yes (Other)
  Sender: FDA-Public Use
  Company Number: BE-PFIZER INC-BE-WYE-H09094909

PATIENT
  Age: 29 Year
  Sex: Male
  Weight: 67.5 kg

DRUGS (2)
  1. BENEFIX [Suspect]
     Dosage: UNSPECIFIED DOSE INCREASE
     Route: 042
     Dates: start: 20071024
  2. BENEFIX [Suspect]
     Indication: FACTOR IX DEFICIENCY
     Dosage: 3000 IU, 3X/WK
     Route: 042
     Dates: start: 20050113, end: 20071023

REACTIONS (1)
  - FACTOR IX INHIBITION [None]
